FAERS Safety Report 5900623-4 (Version None)
Quarter: 2008Q3

REPORT INFORMATION
  Report Type: 
  Country: None (occurrence: None)
  Receive Date: 20080926
  Receipt Date: 20080915
  Transmission Date: 20090109
  Serious: Yes (Hospitalization)
  Sender: FDA-Public Use
  Company Number: FR-PFIZER INC-2008078190

PATIENT
  Sex: Female

DRUGS (5)
  1. ZYVOXID [Suspect]
     Indication: KLEBSIELLA INFECTION
     Route: 042
     Dates: start: 20080118, end: 20080124
  2. GEMCITABINE [Suspect]
     Indication: CHEMOTHERAPY
     Route: 042
     Dates: start: 20080117, end: 20080123
  3. FLUOROURACIL [Concomitant]
     Indication: CHEMOTHERAPY
     Dosage: DAILY DOSE:750MG
     Dates: end: 20080116
  4. CARBOPLATIN [Concomitant]
     Indication: CHEMOTHERAPY
     Dosage: DAILY DOSE:390MG
     Dates: end: 20080116
  5. GENTAMICIN [Concomitant]
     Dates: start: 20080101

REACTIONS (1)
  - RENAL FAILURE ACUTE [None]
